FAERS Safety Report 18557992 (Version 2)
Quarter: 2020Q4

REPORT INFORMATION
  Report Type: Spontaneous
  Country: GB (occurrence: GB)
  Receive Date: 20201130
  Receipt Date: 20201224
  Transmission Date: 20210114
  Serious: Yes (Death)
  Sender: FDA-Public Use
  Company Number: GB-MDD US OPERATIONS-E2B_00003578

PATIENT
  Age: 87 Year
  Sex: Female

DRUGS (4)
  1. XADAGO [Suspect]
     Active Substance: SAFINAMIDE MESYLATE
     Indication: PARKINSON^S DISEASE
     Route: 048
     Dates: start: 20190513, end: 20200726
  2. XADAGO [Suspect]
     Active Substance: SAFINAMIDE MESYLATE
     Route: 048
     Dates: start: 20200727
  3. MIRTAZAPINE. [Concomitant]
     Active Substance: MIRTAZAPINE
     Dates: start: 20200618
  4. MIRTAZAPINE. [Concomitant]
     Active Substance: MIRTAZAPINE
     Dates: start: 201809, end: 20200618

REACTIONS (1)
  - Sudden death [Fatal]

NARRATIVE: CASE EVENT DATE: 20200806
